FAERS Safety Report 18126475 (Version 7)
Quarter: 2021Q4

REPORT INFORMATION
  Report Type: Report from Study
  Country: US (occurrence: US)
  Receive Date: 20200808
  Receipt Date: 20211008
  Transmission Date: 20220303
  Serious: Yes (Life-Threatening, Other)
  Sender: FDA-Public Use
  Company Number: NVSC2020US216766

PATIENT
  Sex: Female

DRUGS (1)
  1. COSENTYX [Suspect]
     Active Substance: SECUKINUMAB
     Indication: Product used for unknown indication
     Dosage: UNK
     Route: 065

REACTIONS (11)
  - Arthralgia [Unknown]
  - Psoriatic arthropathy [Unknown]
  - Alopecia [Unknown]
  - Psoriasis [Unknown]
  - Pain [Unknown]
  - Hypokinesia [Unknown]
  - Swelling [Unknown]
  - Gait inability [Unknown]
  - Skin haemorrhage [Unknown]
  - Condition aggravated [Unknown]
  - Product dose omission issue [Unknown]
